FAERS Safety Report 6782936-X (Version None)
Quarter: 2010Q2

REPORT INFORMATION
  Report Type: 
  Country: None (occurrence: None)
  Receive Date: 20100622
  Receipt Date: 20100610
  Transmission Date: 20101027
  Serious: Yes (Other)
  Sender: FDA-Public Use
  Company Number: CA-JNJFOC-20100604077

PATIENT
  Sex: Male
  Weight: 75 kg

DRUGS (2)
  1. REMICADE [Suspect]
     Indication: COLITIS
     Route: 042
  2. REMICADE [Suspect]
     Route: 042

REACTIONS (9)
  - CHEST DISCOMFORT [None]
  - COLITIS [None]
  - ERYTHEMA [None]
  - INFUSION RELATED REACTION [None]
  - MALAISE [None]
  - NAUSEA [None]
  - OCULAR HYPERAEMIA [None]
  - THROAT TIGHTNESS [None]
  - WEIGHT DECREASED [None]
